FAERS Safety Report 9269493 (Version 3)
Quarter: 2013Q3

REPORT INFORMATION
  Report Type: Spontaneous
  Country: US (occurrence: US)
  Receive Date: 20130503
  Receipt Date: 20130903
  Transmission Date: 20140515
  Serious: Yes (Death, Hospitalization, Other)
  Sender: FDA-Public Use
  Company Number: US-PFIZER INC-2013135740

PATIENT
  Age: 89 Year
  Sex: Female
  Weight: 47.17 kg

DRUGS (1)
  1. REVATIO [Suspect]
     Indication: PULMONARY ARTERIAL HYPERTENSION
     Dosage: 20 MG, 3X/DAY

REACTIONS (5)
  - Pulmonary hypertension [Fatal]
  - Malaise [Unknown]
  - Blood calcium increased [Unknown]
  - Haemoglobin decreased [Unknown]
  - Terminal state [Unknown]
